FAERS Safety Report 4486828-0 (Version None)
Quarter: 2004Q4

REPORT INFORMATION
  Report Type: 
  Country: None (occurrence: None)
  Receive Date: 20041022
  Receipt Date: 20041009
  Transmission Date: 20050328
  Serious: Yes (Other)
  Sender: FDA-Public Use
  Company Number: US-2004-032107

PATIENT
  Age: 52 Year
  Sex: Male

DRUGS (3)
  1. BETASERON [Suspect]
     Indication: MULTIPLE SCLEROSIS
     Dosage: 2 MIU, EVERY 2D, SUBCUTANEOUS
     Route: 058
     Dates: start: 20040830, end: 20040911
  2. NORVASC [Concomitant]
  3. PREVACID [Concomitant]

REACTIONS (9)
  - AORTIC OCCLUSION [None]
  - ARRHYTHMIA [None]
  - ASTHENIA [None]
  - BLOOD PRESSURE INCREASED [None]
  - DIZZINESS [None]
  - HEART RATE IRREGULAR [None]
  - HYPOAESTHESIA [None]
  - PULSE ABNORMAL [None]
  - SUPRAVENTRICULAR EXTRASYSTOLES [None]
